FAERS Safety Report 25309929 (Version 2)
Quarter: 2025Q2

REPORT INFORMATION
  Report Type: Spontaneous
  Country: FR (occurrence: FR)
  Receive Date: 20250514
  Receipt Date: 20250619
  Transmission Date: 20250716
  Serious: Yes (Other)
  Sender: SANDOZ
  Company Number: FR-SAMSUNG BIOEPIS-SB-2025-13676

PATIENT
  Sex: Male

DRUGS (1)
  1. ETANERCEPT [Suspect]
     Active Substance: ETANERCEPT
     Indication: Osteomyelitis
     Dosage: 50 MG, QW
     Route: 058

REACTIONS (4)
  - Osteomyelitis [Recovered/Resolved]
  - Disease recurrence [Recovered/Resolved]
  - Drug effective for unapproved indication [Unknown]
  - Off label use [Unknown]
